FAERS Safety Report 23628640 (Version 1)
Quarter: 2024Q1

REPORT INFORMATION
  Report Type: Spontaneous
  Country: AU (occurrence: None)
  Receive Date: 20240313
  Receipt Date: 20240313
  Transmission Date: 20240409
  Serious: Yes (Hospitalization)
  Sender: FDA-Public Use
  Company Number: 2024A060955

PATIENT
  Age: 60 Year
  Sex: Female

DRUGS (11)
  1. ROSUVASTATIN CALCIUM [Interacting]
     Active Substance: ROSUVASTATIN CALCIUM
     Indication: Cerebrovascular accident
     Dosage: 10 MG EVERY OTHER DAY
     Route: 048
  2. RIBOCICLIB [Interacting]
     Active Substance: RIBOCICLIB
     Indication: Breast cancer
     Dosage: 200 MILLIGRAM
  3. RIBOCICLIB [Interacting]
     Active Substance: RIBOCICLIB
     Indication: Breast cancer metastatic
     Dosage: 200 MILLIGRAM
  4. ANASTROZOLE [Concomitant]
     Active Substance: ANASTROZOLE
     Indication: Hormone receptor positive breast cancer
     Dosage: 1 MG AT 1 DAY INTERVAL
  5. ANASTROZOLE [Concomitant]
     Active Substance: ANASTROZOLE
     Indication: Breast cancer metastatic
     Dosage: 1 MG AT 1 DAY INTERVAL
  6. NALOXONE [Concomitant]
     Active Substance: NALOXONE
     Indication: Breast cancer
  7. NALOXONE HYDROCHLORIDE\OXYCODONE HYDROCHLORIDE [Concomitant]
     Active Substance: NALOXONE HYDROCHLORIDE\OXYCODONE HYDROCHLORIDE
     Indication: Breast cancer
  8. ESOMEPRAZOLE [Concomitant]
     Active Substance: ESOMEPRAZOLE
     Indication: Breast cancer
     Dosage: 20.0 MILLIGRAM(S) (40 MILLIGRAM(S), 1 IN 48 HOUR)
  9. IRBESARTAN [Concomitant]
     Active Substance: IRBESARTAN
     Indication: Breast cancer
     Dosage: 37.5 MILLIGRAM(S) (75 MILLIGRAM(S), 1 IN 48 HOUR)
  10. PREGABALIN [Concomitant]
     Active Substance: PREGABALIN
     Indication: Breast cancer
     Dosage: 75.0 MILLIGRAM(S) (150 MILLIGRAM(S), 1 IN 48 HOUR)
  11. ESCITALOPRAM [Concomitant]
     Active Substance: ESCITALOPRAM OXALATE
     Indication: Breast cancer
     Dosage: 5.0 MILLIGRAM(S) (10 MILLIGRAM(S), 1 IN 48 HOUR)

REACTIONS (3)
  - Acute kidney injury [Recovering/Resolving]
  - Drug interaction [Recovering/Resolving]
  - Rhabdomyolysis [Recovering/Resolving]
